FAERS Safety Report 9263233 (Version 1)
Quarter: 2013Q2

REPORT INFORMATION
  Report Type: Spontaneous
  Country: US (occurrence: US)
  Receive Date: 20130430
  Receipt Date: 20130430
  Transmission Date: 20140414
  Serious: Yes (Hospitalization)
  Sender: FDA-Public Use
  Company Number: US-B.I. PHARMACEUTICALS,INC./RIDGEFIELD-2013-BI-11024BP

PATIENT
  Age: 58 Year
  Sex: Male
  Weight: 122.4 kg

DRUGS (12)
  1. CATAPRES [Suspect]
     Indication: HYPERTENSION
     Dosage: 0.4 MG
     Route: 048
     Dates: start: 20120509, end: 20120803
  2. ASA (ACETYLSALICYLIC ACID) [Concomitant]
  3. ZOCOR (SIMVASTATIN) [Concomitant]
  4. HCTZ (HYDROCHLOROTHIAZIDE) [Concomitant]
  5. HYDRALAZINE (HYDRALAZINE) [Concomitant]
  6. INSULIN ASPART (INSUIN ASPART) [Concomitant]
  7. INSULIN GLARGINE (INSULIN GLARGINE) [Concomitant]
  8. LABETALOL (LABETALOL) [Concomitant]
  9. LISINOPRIL (LISINOPRIL) [Concomitant]
  10. METFORMIN (METFORMIN) [Concomitant]
  11. ERGOCALCIFEROL (ERGOCALCIFEROL) [Concomitant]
  12. HYDROXYZINE (HYDROXYZINE) [Concomitant]

REACTIONS (2)
  - Dyspnoea exertional [Unknown]
  - Fatigue [Unknown]
